FAERS Safety Report 4791572-6 (Version None)
Quarter: 2005Q4

REPORT INFORMATION
  Report Type: 
  Country: None (occurrence: None)
  Receive Date: 20051007
  Receipt Date: 20050324
  Transmission Date: 20060501
  Serious: Yes (Hospitalization)
  Sender: FDA-Public Use
  Company Number: US-BRISTOL-MYERS SQUIBB COMPANY-12911038

PATIENT
  Age: 65 Year
  Sex: Female
  Weight: 6 kg

DRUGS (9)
  1. AVAPRO [Suspect]
     Indication: HYPERTENSION
  2. ACTOS [Concomitant]
     Dosage: ^LONG TIME^
  3. ZANTAC [Concomitant]
     Dosage: ^5-6 YEARS^
  4. TRIAMTERENE [Concomitant]
     Dosage: 37.5/25 MILLIGRAMS ONGOING 5-6 YEARS
  5. POTASSIUM [Concomitant]
     Dosage: ^4-5 YEARS^
  6. ASPIRIN [Concomitant]
  7. CALCIUM GLUCONATE [Concomitant]
  8. MULTI-VITAMIN [Concomitant]
     Dosage: ^LONG TIME^
  9. VYTORIN [Concomitant]
     Dosage: 10-20 MG

REACTIONS (2)
  - ASTHENIA [None]
  - DIZZINESS [None]
